FAERS Safety Report 8607837-3 (Version None)
Quarter: 2012Q3

REPORT INFORMATION
  Report Type: 
  Country: None (occurrence: None)
  Receive Date: 20120821
  Receipt Date: 20120807
  Transmission Date: 20120928
  Serious: Yes (Death, Hospitalization)
  Sender: FDA-Public Use
  Company Number: JP-MYLANLABS-2012S1016367

PATIENT
  Age: 74 Year
  Sex: Male
  Weight: 59 kg

DRUGS (3)
  1. DORIPENEM MONOHYDRATE [Concomitant]
     Indication: PNEUMONIA
     Route: 042
  2. VANCOMYCIN [Suspect]
     Indication: PNEUMONIA
     Route: 042
     Dates: start: 20120615, end: 20120615
  3. HUMULIN R [Concomitant]
     Indication: PRODUCT USED FOR UNKNOWN INDICATION
     Route: 042
     Dates: start: 20120615, end: 20120615

REACTIONS (3)
  - RENAL FAILURE [None]
  - RESPIRATORY DISORDER [None]
  - PNEUMONIA [None]
